FAERS Safety Report 15617708 (Version 2)
Quarter: 2018Q4

REPORT INFORMATION
  Report Type: Report from Study
  Country: US (occurrence: US)
  Receive Date: 20181114
  Receipt Date: 20181204
  Transmission Date: 20190205
  Serious: Yes (Death, Hospitalization, Other)
  Sender: FDA-Public Use
  Company Number: PHHY2017US102554

PATIENT
  Age: 58 Year
  Sex: Female
  Weight: 62.59 kg

DRUGS (2)
  1. GILENYA [Suspect]
     Active Substance: FINGOLIMOD HYDROCHLORIDE
     Indication: MULTIPLE SCLEROSIS
     Dosage: 0.5 MG, QD
     Route: 048
     Dates: start: 20140905, end: 20150915
  2. TECFIDERA [Suspect]
     Active Substance: DIMETHYL FUMARATE
     Indication: RELAPSING-REMITTING MULTIPLE SCLEROSIS
     Dosage: UNK
     Route: 065
     Dates: end: 201701

REACTIONS (33)
  - Cardio-respiratory arrest [Fatal]
  - Asthenia [Not Recovered/Not Resolved]
  - Renal failure [Not Recovered/Not Resolved]
  - Metabolic acidosis [Not Recovered/Not Resolved]
  - Syncope [Unknown]
  - Arteriosclerosis coronary artery [Unknown]
  - Hypotension [Not Recovered/Not Resolved]
  - Hypovolaemic shock [Not Recovered/Not Resolved]
  - Progressive multiple sclerosis [Not Recovered/Not Resolved]
  - Lethargy [Unknown]
  - Anaemia of chronic disease [Unknown]
  - Oedema peripheral [Not Recovered/Not Resolved]
  - Hyperammonaemia [Not Recovered/Not Resolved]
  - Bradycardia [Unknown]
  - Anaemia vitamin B12 deficiency [Unknown]
  - Platelet count decreased [Unknown]
  - Mental status changes [Not Recovered/Not Resolved]
  - Autonomic nervous system imbalance [Not Recovered/Not Resolved]
  - Anaemia [Unknown]
  - Intervertebral disc space narrowing [Unknown]
  - Fat tissue increased [Unknown]
  - Unresponsive to stimuli [Not Recovered/Not Resolved]
  - Skin discolouration [Unknown]
  - Retention cyst [Unknown]
  - Seizure [Not Recovered/Not Resolved]
  - Neutropenia [Unknown]
  - Fall [Unknown]
  - Blood alkaline phosphatase increased [Unknown]
  - Metabolic encephalopathy [Not Recovered/Not Resolved]
  - Coagulopathy [Not Recovered/Not Resolved]
  - Dehydration [Not Recovered/Not Resolved]
  - Respiratory failure [Not Recovered/Not Resolved]
  - Cerebral arteriosclerosis [Unknown]

NARRATIVE: CASE EVENT DATE: 20150209
